FAERS Safety Report 9894477 (Version 4)
Quarter: 2017Q1

REPORT INFORMATION
  Report Type: Report from Study
  Country: US (occurrence: US)
  Receive Date: 20140213
  Receipt Date: 20170302
  Transmission Date: 20170429
  Serious: Yes (Death, Hospitalization)
  Sender: FDA-Public Use
  Company Number: US-ACTELION-A-US2014-94591

PATIENT
  Age: 20 Year
  Sex: Female
  Weight: 19.5 kg

DRUGS (2)
  1. TRACLEER [Suspect]
     Active Substance: BOSENTAN
     Indication: PULMONARY ARTERIAL HYPERTENSION
     Dosage: 62.5 MG, BID
     Route: 048
     Dates: start: 20050902, end: 20170204
  2. SILDENAFIL. [Concomitant]
     Active Substance: SILDENAFIL

REACTIONS (8)
  - Pneumonia [Recovering/Resolving]
  - Scleroderma [Fatal]
  - Dyspnoea [Fatal]
  - Pneumothorax [Fatal]
  - Cough [Unknown]
  - Lung disorder [Unknown]
  - Interstitial lung disease [Recovering/Resolving]
  - Respiratory distress [Recovering/Resolving]

NARRATIVE: CASE EVENT DATE: 20140109
